FAERS Safety Report 9123400 (Version 1)
Quarter: 2013Q1

REPORT INFORMATION
  Report Type: Spontaneous
  Country: US (occurrence: US)
  Receive Date: 20130115
  Receipt Date: 20130115
  Transmission Date: 20140127
  Serious: Yes (Other)
  Sender: FDA-Public Use
  Company Number: US-ASTRAZENECA-2013SE01216

PATIENT
  Age: 73 Year
  Sex: Female

DRUGS (2)
  1. SYMBICORT PMDI [Suspect]
     Indication: CHRONIC OBSTRUCTIVE PULMONARY DISEASE
     Dosage: 160/4.5 UNKNOWN FREQUENCY
     Route: 055
  2. XELODA [Concomitant]
     Indication: BREAST CANCER FEMALE

REACTIONS (2)
  - Cataract [Unknown]
  - Breast cancer female [Unknown]
